FAERS Safety Report 15779028 (Version 3)
Quarter: 2019Q1

REPORT INFORMATION
  Report Type: Spontaneous
  Country: US (occurrence: US)
  Receive Date: 20190101
  Receipt Date: 20190219
  Transmission Date: 20190417
  Serious: Yes (Other)
  Sender: FDA-Public Use
  Company Number: PHEH2018US054898

PATIENT
  Sex: Female

DRUGS (1)
  1. LOSARTAN POTASSIUM+HYDROCHLOROTHIAZIDE [Suspect]
     Active Substance: HYDROCHLOROTHIAZIDE\LOSARTAN POTASSIUM
     Indication: PRODUCT USED FOR UNKNOWN INDICATION
     Dosage: 175 MG, UNK
     Route: 065
     Dates: end: 201811

REACTIONS (6)
  - Malaise [Unknown]
  - Sputum discoloured [Unknown]
  - Dysphonia [Unknown]
  - Rash generalised [Unknown]
  - Lung neoplasm malignant [Unknown]
  - Cough [Unknown]
